FAERS Safety Report 10983902 (Version 1)
Quarter: 2015Q2

REPORT INFORMATION
  Report Type: Spontaneous
  Country: DE (occurrence: None)
  Receive Date: 20150401
  Receipt Date: 20150401
  Transmission Date: 20150821
  Serious: No
  Sender: FDA-Public Use
  Company Number: DE-LHC-2015038

PATIENT
  Sex: Female

DRUGS (1)
  1. CONOXIA (OXYGEN) (GAS FOR INHALATION) (VERUM) [Suspect]
     Active Substance: OXYGEN
     Indication: PRODUCT USED FOR UNKNOWN INDICATION
     Route: 055

REACTIONS (4)
  - Wrong technique in drug usage process [None]
  - Dyspnoea [None]
  - Device issue [None]
  - Device malfunction [None]

NARRATIVE: CASE EVENT DATE: 20150319
